FAERS Safety Report 25631265 (Version 1)
Quarter: 2025Q3

REPORT INFORMATION
  Report Type: 
  Country: CN (occurrence: CN)
  Receive Date: 20250801
  Receipt Date: 20250801
  Transmission Date: 20251020
  Serious: Yes (Hospitalization, Other)
  Sender: AKESO BIOPHARMA CO., LTD.
  Company Number: CN-Akeso Biopharma Co., Ltd.-2181635

PATIENT
  Age: 67 Year
  Sex: Female
  Weight: 54 kg

DRUGS (6)
  1. PENPULIMAB-KCQX [Suspect]
     Active Substance: PENPULIMAB-KCQX
     Indication: Lung neoplasm malignant
     Dates: start: 20250403, end: 20250503
  2. PEMETREXED DISODIUM [Suspect]
     Active Substance: PEMETREXED DISODIUM
     Dates: start: 20250403, end: 20250503
  3. 5% Glucose Injection 500ml [Concomitant]
     Dates: start: 20250403, end: 20250503
  4. 0.9% Sodium Chloride Injection 250ml [Concomitant]
     Dates: start: 20250403, end: 20250503
  5. 0.9% Sodium Chloride Injection 100ml [Concomitant]
     Dates: start: 20250403, end: 20250503
  6. CARBOPLATIN [Suspect]
     Active Substance: CARBOPLATIN
     Dates: start: 20250403, end: 20250503

REACTIONS (1)
  - Liver injury [Recovering/Resolving]

NARRATIVE: CASE EVENT DATE: 20250516
